FAERS Safety Report 17101239 (Version 2)
Quarter: 2019Q4

REPORT INFORMATION
  Report Type: Spontaneous
  Country: US (occurrence: US)
  Receive Date: 20191202
  Receipt Date: 20191211
  Transmission Date: 20200122
  Serious: Yes (Other)
  Sender: FDA-Public Use
  Company Number: US-SA-2019SA331301

PATIENT
  Age: 63 Year
  Sex: Male

DRUGS (2)
  1. LANTUS SOLOSTAR [Suspect]
     Active Substance: INSULIN GLARGINE
     Indication: TYPE 2 DIABETES MELLITUS
     Dosage: 70 U, QD
     Route: 065
  2. NOVOLOG [Concomitant]
     Active Substance: INSULIN ASPART
     Route: 065

REACTIONS (3)
  - Blood pressure increased [Unknown]
  - Blood glucose decreased [Unknown]
  - Feeling abnormal [Unknown]
